FAERS Safety Report 16538853 (Version 1)
Quarter: 2019Q3

REPORT INFORMATION
  Report Type: Spontaneous
  Country: DE (occurrence: DE)
  Receive Date: 20190708
  Receipt Date: 20190708
  Transmission Date: 20191004
  Serious: Yes (Other)
  Sender: FDA-Public Use
  Company Number: DE-AUROBINDO-AUR-APL-2019-037988

PATIENT

DRUGS (4)
  1. VIGANTOL [Concomitant]
     Indication: VITAMIN D DEFICIENCY
     Dosage: 1000 INTERNATIONAL UNIT, DAILY
     Route: 048
  2. SERTRALINE [Suspect]
     Active Substance: SERTRALINE HYDROCHLORIDE
     Indication: DEPRESSION
     Dosage: 50 MILLIGRAM, DAILY
     Route: 048
     Dates: start: 20171123
  3. THYRONAJOD [Concomitant]
     Active Substance: LEVOTHYROXINE SODIUM\POTASSIUM IODIDE
     Indication: HYPOTHYROIDISM
     Dosage: 150 MICROGRAM, DAILY,100 [?G/D (BIS 50) ] / 150 [?G/D ]
     Route: 048
     Dates: start: 20171123, end: 20180824
  4. FOLIC ACID. [Concomitant]
     Active Substance: FOLIC ACID
     Indication: PROPHYLAXIS OF NEURAL TUBE DEFECT
     Dosage: 5 MILLIGRAM, DAILY
     Route: 048
     Dates: start: 20171123, end: 20180824

REACTIONS (3)
  - Pre-eclampsia [Recovered/Resolved]
  - Puerperal pyrexia [Recovered/Resolved]
  - Reversible cerebral vasoconstriction syndrome [Recovered/Resolved]
